FAERS Safety Report 6576582-0 (Version None)
Quarter: 2010Q1

REPORT INFORMATION
  Report Type: 
  Country: None (occurrence: None)
  Receive Date: 20100210
  Receipt Date: 20100129
  Transmission Date: 20100710
  Serious: Yes (Hospitalization)
  Sender: FDA-Public Use
  Company Number: PHEH2010US01656

PATIENT
  Sex: Female

DRUGS (3)
  1. EXJADE [Suspect]
     Dosage: 500 MG, QD
     Route: 048
  2. PEPCID [Concomitant]
     Dosage: 20 MG, BID
     Route: 065
  3. HYDREA [Concomitant]
     Dosage: 500 MG, QD
     Route: 065

REACTIONS (8)
  - ABDOMINAL PAIN [None]
  - ANAEMIA [None]
  - BLOOD CALCIUM DECREASED [None]
  - BLOOD CHLORIDE INCREASED [None]
  - HYPERKALAEMIA [None]
  - NEPHROPATHY [None]
  - OSTEOPENIA [None]
  - SICKLE CELL ANAEMIA WITH CRISIS [None]
